FAERS Safety Report 8496670-1 (Version None)
Quarter: 2012Q3

REPORT INFORMATION
  Report Type: 
  Country: None (occurrence: None)
  Receive Date: 20120709
  Receipt Date: 20120705
  Transmission Date: 20120928
  Serious: Yes (Death)
  Sender: FDA-Public Use
  Company Number: US-GILEAD-2012-0055460

PATIENT
  Sex: Female

DRUGS (2)
  1. SILDENAFIL [Concomitant]
     Dosage: UNK
     Dates: start: 20110407
  2. LETAIRIS [Suspect]
     Indication: PULMONARY ARTERIAL HYPERTENSION
     Dosage: 5 MG, UNK
     Route: 048
     Dates: start: 20120419, end: 20120521

REACTIONS (2)
  - COR PULMONALE [None]
  - RESPIRATORY FAILURE [None]
